FAERS Safety Report 17257063 (Version 1)
Quarter: 2020Q1

REPORT INFORMATION
  Report Type: Spontaneous
  Country: US (occurrence: US)
  Receive Date: 20200110
  Receipt Date: 20200110
  Transmission Date: 20200409
  Serious: Yes (Hospitalization)
  Sender: FDA-Public Use
  Company Number: NVSC2020US003899

PATIENT
  Sex: Male

DRUGS (2)
  1. DABRAFENIB [Suspect]
     Active Substance: DABRAFENIB
     Indication: ANAPLASTIC THYROID CANCER
     Route: 065
  2. TRAMETINIB [Suspect]
     Active Substance: TRAMETINIB
     Indication: ANAPLASTIC THYROID CANCER
     Route: 065

REACTIONS (2)
  - Gastrointestinal haemorrhage [Unknown]
  - Product use in unapproved indication [Unknown]
